FAERS Safety Report 9570255 (Version 1)
Quarter: 2013Q3

REPORT INFORMATION
  Report Type: Spontaneous
  Country: US (occurrence: US)
  Receive Date: 20130930
  Receipt Date: 20130930
  Transmission Date: 20140515
  Serious: No
  Sender: FDA-Public Use
  Company Number: US-AMGEN-USASP2013064738

PATIENT
  Age: 37 Year
  Sex: Female
  Weight: 74.83 kg

DRUGS (4)
  1. ENBREL [Suspect]
     Indication: PRODUCT USED FOR UNKNOWN INDICATION
     Dosage: 50 MG, QWK
     Route: 058
  2. ADVIL                              /00044201/ [Concomitant]
     Dosage: 200 MG, UNK
     Route: 048
  3. EXCEDRIN                           /00110301/ [Concomitant]
     Route: 048
  4. BENADRYL                           /00000402/ [Concomitant]
     Dosage: 25 MG, UNK
     Route: 048

REACTIONS (4)
  - Muscular weakness [Unknown]
  - Fatigue [Unknown]
  - Pain [Unknown]
  - Sensation of heaviness [Unknown]
